FAERS Safety Report 14253171 (Version 7)
Quarter: 2019Q3

REPORT INFORMATION
  Report Type: Report from Study
  Country: US (occurrence: US)
  Receive Date: 20171205
  Receipt Date: 20190819
  Transmission Date: 20191004
  Serious: Yes (Death, Hospitalization, Other)
  Sender: FDA-Public Use
  Company Number: US-ACADIA PHARMACEUTICALS INC.-ACA-2017-006431

PATIENT
  Age: 77 Year
  Sex: Male

DRUGS (4)
  1. NUPLAZID [Suspect]
     Active Substance: PIMAVANSERIN TARTRATE
     Indication: PARKINSON^S DISEASE PSYCHOSIS
     Dosage: 17 MG, QD
     Route: 048
     Dates: start: 201711
  2. NUPLAZID [Suspect]
     Active Substance: PIMAVANSERIN TARTRATE
     Indication: PARKINSON^S DISEASE
     Dosage: 34 MG, QD
     Route: 048
  3. NUPLAZID [Suspect]
     Active Substance: PIMAVANSERIN TARTRATE
     Indication: HALLUCINATION
     Dosage: 34 MG, QD
     Route: 048
     Dates: start: 20180112
  4. NUPLAZID [Suspect]
     Active Substance: PIMAVANSERIN TARTRATE
     Indication: DELUSION
     Dosage: 17 MG, ONCE
     Route: 048
     Dates: start: 20180807, end: 20180807

REACTIONS (10)
  - Pneumonia [Unknown]
  - Pyrexia [Unknown]
  - Underdose [Unknown]
  - Clavicle fracture [Unknown]
  - Hallucination [Unknown]
  - Pneumonia aspiration [Unknown]
  - Sepsis [Unknown]
  - Blood pressure fluctuation [Unknown]
  - Death [Fatal]
  - Feeding tube user [Unknown]

NARRATIVE: CASE EVENT DATE: 201801
